FAERS Safety Report 17166495 (Version 3)
Quarter: 2020Q1

REPORT INFORMATION
  Report Type: Spontaneous
  Country: JP (occurrence: JP)
  Receive Date: 20191217
  Receipt Date: 20200102
  Transmission Date: 20200409
  Serious: Yes (Death, Hospitalization, Other)
  Sender: FDA-Public Use
  Company Number: JP-009507513-1911JPN002124J

PATIENT
  Age: 85 Year
  Sex: Male
  Weight: 47 kg

DRUGS (8)
  1. ZOSYN [Suspect]
     Active Substance: PIPERACILLIN SODIUM\TAZOBACTAM SODIUM
     Indication: INFECTION
  2. MEROPENEM. [Suspect]
     Active Substance: MEROPENEM
     Indication: PNEUMONIA
  3. ZOSYN [Suspect]
     Active Substance: PIPERACILLIN SODIUM\TAZOBACTAM SODIUM
     Indication: PNEUMONIA
     Dosage: 13.5 GRAM, TID
     Route: 041
     Dates: start: 20191114, end: 20191129
  4. CANCIDAS [Suspect]
     Active Substance: CASPOFUNGIN ACETATE
     Indication: CANDIDA INFECTION
     Dosage: 70 MILLIGRAM, QD
     Route: 041
     Dates: start: 20191116, end: 20191125
  5. MEROPENEM. [Suspect]
     Active Substance: MEROPENEM
     Indication: INFECTION
     Dosage: 1 GRAM, TID
     Route: 041
     Dates: start: 20191014, end: 20191114
  6. HEPARIN SODIUM. [Concomitant]
     Active Substance: HEPARIN SODIUM
     Indication: ANTICOAGULANT THERAPY
     Dosage: 10000V/DAY
     Route: 041
     Dates: start: 20191014, end: 20191129
  7. OMEPRAZOLE. [Concomitant]
     Active Substance: OMEPRAZOLE
     Dosage: 20 MILLIGRAM, BID
     Route: 065
     Dates: start: 20191015, end: 20191128
  8. PAREPLUS [Concomitant]
     Active Substance: AMINO ACIDS\DEXTROSE\ELECTROLYTES NOS\VITAMINS
     Dosage: 500 MILLILITER, ONCE
     Route: 065
     Dates: start: 20191107, end: 20191120

REACTIONS (5)
  - Dehydration [Unknown]
  - Electrolyte imbalance [Unknown]
  - Sepsis [Fatal]
  - Renal impairment [Not Recovered/Not Resolved]
  - Inflammation [Unknown]

NARRATIVE: CASE EVENT DATE: 2019
